FAERS Safety Report 9502758 (Version 3)
Quarter: 2013Q4

REPORT INFORMATION
  Report Type: Spontaneous
  Country: US (occurrence: US)
  Receive Date: 20130906
  Receipt Date: 20131025
  Transmission Date: 20140711
  Serious: Yes (Hospitalization, Other)
  Sender: FDA-Public Use
  Company Number: US-VIROPHARMA INCORPORATED-20130827CINRY4893

PATIENT
  Age: 58 Year
  Sex: Female
  Weight: 58.57 kg

DRUGS (4)
  1. CINRYZE (C1 ESTERASE INHIBITOR (HUMAN)) [Suspect]
     Indication: HEREDITARY ANGIOEDEMA
     Dates: start: 2011, end: 201309
  2. CINRYZE (C1 ESTERASE INHIBITOR (HUMAN)) [Suspect]
     Indication: PROPHYLAXIS
     Dates: start: 201309, end: 201309
  3. FIRAZYR [Concomitant]
     Indication: PRODUCT USED FOR UNKNOWN INDICATION
     Dosage: 30MG/3ML
     Route: 058
  4. VYVANSE [Concomitant]
     Indication: PRODUCT USED FOR UNKNOWN INDICATION
     Route: 065

REACTIONS (6)
  - Splenic marginal zone lymphoma [Not Recovered/Not Resolved]
  - Pulmonary granuloma [Not Recovered/Not Resolved]
  - Cholecystectomy [Recovered/Resolved]
  - Off label use [Recovered/Resolved]
  - Hereditary angioedema [Recovered/Resolved]
  - Therapy change [Not Recovered/Not Resolved]
